FAERS Safety Report 24117881 (Version 2)
Quarter: 2024Q3

REPORT INFORMATION
  Report Type: Report from Study
  Country: CN (occurrence: CN)
  Receive Date: 20240722
  Receipt Date: 20240924
  Transmission Date: 20241017
  Serious: Yes (Other)
  Sender: ROCHE
  Company Number: CN-ROCHE-2110072

PATIENT
  Age: 59 Year
  Sex: Female
  Weight: 60.0 kg

DRUGS (3)
  1. AVASTIN [Suspect]
     Active Substance: BEVACIZUMAB
     Indication: Colorectal cancer
     Dosage: FORM OF ADMIN: 100MG, INJECTION
     Route: 041
     Dates: start: 20160810
  2. AVASTIN [Suspect]
     Active Substance: BEVACIZUMAB
     Dosage: FORM OF ADMIN: 100MG, INJECTION
     Route: 041
     Dates: start: 20170531
  3. AVASTIN [Suspect]
     Active Substance: BEVACIZUMAB
     Dosage: FORM OF ADMIN: 100MG, INJECTION
     Route: 041
     Dates: start: 20180502

REACTIONS (15)
  - Protein urine present [Unknown]
  - Hypertension [Unknown]
  - Oedema peripheral [Unknown]
  - Renal impairment [Unknown]
  - Gingival swelling [Unknown]
  - Hypertension [Unknown]
  - Albuminuria [Unknown]
  - COVID-19 [Unknown]
  - Nasopharyngitis [Unknown]
  - Malaise [Unknown]
  - Blood pressure increased [Recovering/Resolving]
  - Hepatic cancer metastatic [Not Recovered/Not Resolved]
  - Ill-defined disorder [Unknown]
  - Toothache [Unknown]
  - Eating disorder [Unknown]

NARRATIVE: CASE EVENT DATE: 20161109
